FAERS Safety Report 6545062-0 (Version None)
Quarter: 2010Q1

REPORT INFORMATION
  Report Type: 
  Country: None (occurrence: None)
  Receive Date: 20100121
  Receipt Date: 20100112
  Transmission Date: 20100710
  Serious: Yes (Hospitalization)
  Sender: FDA-Public Use
  Company Number: D0066014A

PATIENT
  Sex: Female

DRUGS (2)
  1. LAMICTAL [Suspect]
     Route: 048
     Dates: start: 20090401
  2. VALPROATE SODIUM [Suspect]
     Route: 065
     Dates: start: 20090401

REACTIONS (3)
  - ARRHYTHMIA [None]
  - HEPATIC FAILURE [None]
  - PANCREATITIS [None]
